FAERS Safety Report 16065646 (Version 2)
Quarter: 2019Q1

REPORT INFORMATION
  Report Type: Spontaneous
  Country: US (occurrence: US)
  Receive Date: 20190313
  Receipt Date: 20190320
  Transmission Date: 20190418
  Serious: Yes (Hospitalization)
  Sender: FDA-Public Use
  Company Number: US-AUROBINDO-AUR-APL-2019-012370

PATIENT

DRUGS (1)
  1. CEPHALEXIN CAPSULES USP 500 MG [Suspect]
     Active Substance: CEPHALEXIN
     Indication: NASAL CONGESTION
     Dosage: UNK
     Route: 065
     Dates: start: 20190222, end: 20190222

REACTIONS (1)
  - Disturbance in social behaviour [Unknown]

NARRATIVE: CASE EVENT DATE: 20190222
